FAERS Safety Report 5118451-9 (Version None)
Quarter: 2006Q3

REPORT INFORMATION
  Report Type: 
  Country: None (occurrence: None)
  Receive Date: 20060926
  Receipt Date: 20060918
  Transmission Date: 20061208
  Serious: Yes (Hospitalization, Other)
  Sender: FDA-Public Use
  Company Number: 235913K06USA

PATIENT
  Age: 44 Year
  Sex: Male

DRUGS (5)
  1. REBIF [Suspect]
     Indication: MULTIPLE SCLEROSIS
     Dosage: 44 MCG, 3 IN 1 WEEKS, SUBCUTANEOUS
     Route: 058
     Dates: start: 20040617
  2. NEURONTIN [Concomitant]
  3. WELLBUTRIN XL [Concomitant]
  4. NAMENDA [Concomitant]
  5. FOLBEE (VITAMINS NOS) [Concomitant]

REACTIONS (8)
  - ABDOMINAL PAIN [None]
  - IATROGENIC INJURY [None]
  - INGUINAL HERNIA [None]
  - INJECTION SITE ERYTHEMA [None]
  - INJECTION SITE RASH [None]
  - PROCEDURAL COMPLICATION [None]
  - RHINORRHOEA [None]
  - URINARY RETENTION POSTOPERATIVE [None]
